FAERS Safety Report 5265470-8 (Version None)
Quarter: 2007Q1

REPORT INFORMATION
  Report Type: 
  Country: None (occurrence: None)
  Receive Date: 20070314
  Receipt Date: 20070221
  Transmission Date: 20070707
  Serious: Yes (Hospitalization, Disabling, Other)
  Sender: FDA-Public Use
  Company Number: US-PFIZER INC-2007014524

PATIENT
  Sex: Female
  Weight: 101.2 kg

DRUGS (1)
  1. CELEBREX [Suspect]
     Indication: ARTHRITIS

REACTIONS (8)
  - AMNESIA [None]
  - APRAXIA [None]
  - CEREBRAL INFARCTION [None]
  - CEREBROVASCULAR ACCIDENT [None]
  - DISABILITY [None]
  - DYSCALCULIA [None]
  - DYSGRAPHIA [None]
  - JUDGEMENT IMPAIRED [None]
